FAERS Safety Report 19683533 (Version 12)
Quarter: 2024Q2

REPORT INFORMATION
  Report Type: Spontaneous
  Country: CA (occurrence: CA)
  Receive Date: 20210810
  Receipt Date: 20240618
  Transmission Date: 20240716
  Serious: Yes (Other)
  Sender: FDA-Public Use
  Company Number: CA-CELLTRION INC.-2019CA028246

PATIENT

DRUGS (68)
  1. INFLECTRA [Suspect]
     Active Substance: INFLIXIMAB-DYYB
     Indication: Colitis ulcerative
     Dosage: 400 MG, AT 0, 2, 6 WEEKS, THEN EVERY 8 WEEKS
     Route: 042
     Dates: start: 20190826
  2. INFLECTRA [Suspect]
     Active Substance: INFLIXIMAB-DYYB
     Indication: Crohn^s disease
     Dosage: 400 MG FREQUENCY: 4 WEEKS
     Route: 042
     Dates: start: 20190905
  3. INFLECTRA [Suspect]
     Active Substance: INFLIXIMAB-DYYB
     Dosage: 400 MG, AT 0, 2, 6 WEEKS, THEN EVERY 8 WEEKS
     Route: 042
     Dates: start: 20190911
  4. INFLECTRA [Suspect]
     Active Substance: INFLIXIMAB-DYYB
     Dosage: 400 MG, AT 0, 2, 6 WEEKS, THEN EVERY 8 WEEKS
     Route: 042
     Dates: start: 20190911
  5. INFLECTRA [Suspect]
     Active Substance: INFLIXIMAB-DYYB
     Dosage: 400 MG, AT 0, 2, 6 WEEKS, THEN EVERY 8 WEEKS
     Route: 042
     Dates: start: 20191012
  6. INFLECTRA [Suspect]
     Active Substance: INFLIXIMAB-DYYB
     Dosage: 400 MG, AT 0, 2, 6 WEEKS, THEN EVERY 8 WEEKS
     Route: 042
     Dates: start: 20191206
  7. INFLECTRA [Suspect]
     Active Substance: INFLIXIMAB-DYYB
     Dosage: 400 MG, AT 0, 2, 6 WEEKS, THEN EVERY 8 WEEKS
     Route: 042
     Dates: start: 20200207, end: 20200207
  8. INFLECTRA [Suspect]
     Active Substance: INFLIXIMAB-DYYB
     Dosage: 400 MG, AT 0, 2, 6 WEEKS, THEN EVERY 8 WEEKS
     Route: 042
     Dates: start: 20200401
  9. INFLECTRA [Suspect]
     Active Substance: INFLIXIMAB-DYYB
     Dosage: 400 MG, AT 0, 2, 6 WEEKS, THEN EVERY 8 WEEKS
     Route: 042
     Dates: start: 20200527
  10. INFLECTRA [Suspect]
     Active Substance: INFLIXIMAB-DYYB
     Dosage: 400 MG, AT 0, 2, 6 WEEKS, THEN EVERY 8 WEEKS
     Route: 042
     Dates: start: 20200527
  11. INFLECTRA [Suspect]
     Active Substance: INFLIXIMAB-DYYB
     Dosage: 400 MG, AT 0, 2, 6 WEEKS, THEN EVERY 8 WEEKS
     Route: 042
     Dates: start: 20200527
  12. INFLECTRA [Suspect]
     Active Substance: INFLIXIMAB-DYYB
     Dosage: 400 MG, AT 0, 2, 6 WEEKS, THEN EVERY 8 WEEKS
     Route: 042
     Dates: start: 20200722, end: 20200722
  13. INFLECTRA [Suspect]
     Active Substance: INFLIXIMAB-DYYB
     Dosage: 400 MG, AT 0, 2, 6 WEEKS, THEN EVERY 8 WEEKS
     Route: 042
     Dates: start: 20200916
  14. INFLECTRA [Suspect]
     Active Substance: INFLIXIMAB-DYYB
     Dosage: 400 MG, AT 0, 2, 6 WEEKS, THEN EVERY 8 WEEKS
     Route: 042
     Dates: start: 20200916
  15. INFLECTRA [Suspect]
     Active Substance: INFLIXIMAB-DYYB
     Dosage: 400 MG, AT 0, 2, 6 WEEKS, THEN EVERY 8 WEEKS
     Route: 042
     Dates: start: 20201116, end: 20201116
  16. INFLECTRA [Suspect]
     Active Substance: INFLIXIMAB-DYYB
     Dosage: 400 MG, AT 0, 2, 6 WEEKS, THEN EVERY 8 WEEKS
     Route: 042
     Dates: start: 20201116, end: 20201116
  17. INFLECTRA [Suspect]
     Active Substance: INFLIXIMAB-DYYB
     Dosage: 400 MG, AT 0, 2, 6 WEEKS, THEN EVERY 8 WEEKS
     Route: 042
     Dates: start: 20201116
  18. INFLECTRA [Suspect]
     Active Substance: INFLIXIMAB-DYYB
     Dosage: 400 MG, AT 0, 2, 6 WEEKS, THEN EVERY 8 WEEKS
     Route: 042
     Dates: start: 20210107, end: 20210107
  19. INFLECTRA [Suspect]
     Active Substance: INFLIXIMAB-DYYB
     Dosage: 400 MG, AT 0, 2, 6 WEEKS, THEN EVERY 8 WEEKS
     Route: 042
     Dates: start: 20210429
  20. INFLECTRA [Suspect]
     Active Substance: INFLIXIMAB-DYYB
     Dosage: 400 MG, AT 0, 2, 6 WEEKS, THEN EVERY 8 WEEKS
     Route: 042
     Dates: start: 20210625, end: 20210819
  21. INFLECTRA [Suspect]
     Active Substance: INFLIXIMAB-DYYB
     Dosage: 400 MG EVERY 8 WEEKS
     Route: 042
     Dates: start: 20211014
  22. INFLECTRA [Suspect]
     Active Substance: INFLIXIMAB-DYYB
     Dosage: 400 MG FREQUENCY: 4 WEEKS
     Route: 042
     Dates: start: 20220811
  23. INFLECTRA [Suspect]
     Active Substance: INFLIXIMAB-DYYB
     Dosage: 400 MG FREQUENCY: 4 WEEKS
     Route: 042
     Dates: start: 20220908
  24. INFLECTRA [Suspect]
     Active Substance: INFLIXIMAB-DYYB
     Dosage: 400 MG FREQUENCY: 4 WEEKS
     Route: 042
     Dates: start: 20221103
  25. INFLECTRA [Suspect]
     Active Substance: INFLIXIMAB-DYYB
     Dosage: 400 MG FREQUENCY: 4 WEEKS
     Route: 042
     Dates: start: 20221201
  26. INFLECTRA [Suspect]
     Active Substance: INFLIXIMAB-DYYB
     Dosage: 400 MG EVERY 4 WEEKS
     Route: 042
     Dates: start: 20230713
  27. INFLECTRA [Suspect]
     Active Substance: INFLIXIMAB-DYYB
     Dosage: 400 MG EVERY 4 WEEKS
     Route: 042
     Dates: start: 20230816
  28. INFLECTRA [Suspect]
     Active Substance: INFLIXIMAB-DYYB
     Dosage: 400 MG EVERY 4 WEEKS
     Route: 042
     Dates: start: 20230822
  29. INFLECTRA [Suspect]
     Active Substance: INFLIXIMAB-DYYB
     Dosage: 400 MG, EVERY 4 WEEKS
     Route: 042
     Dates: start: 20231214
  30. INFLECTRA [Suspect]
     Active Substance: INFLIXIMAB-DYYB
     Dosage: 400 MG, EVERY 4 WEEKS
     Route: 042
     Dates: start: 20240528
  31. AFLURIA TETRA [Concomitant]
     Indication: Influenza immunisation
     Dosage: DOSE NUMBER UNKNOWN, 0.5 ML SINGLE, 1 VIALS FOR 1 DAYS
     Dates: start: 20201026, end: 20201026
  32. SPIKEVAX [Concomitant]
     Indication: COVID-19 immunisation
     Dosage: DOSE NUMBER UNKNOWN, SINGLE (1 VIALS FOR 1 DAY)
     Dates: start: 20210317, end: 20210317
  33. SPIKEVAX [Concomitant]
     Dosage: DOSE NUMBER UNKNOWN, 0.5 ML SINGLE (100 MCG VIAL FOR 1 DAYS)
     Dates: start: 20210528, end: 20210528
  34. COMIRNATY [Concomitant]
     Indication: COVID-19 immunisation
     Dosage: DOSE NUMBER UNKNOWN (BOOSTER), 0.3 ML SINGLE
     Dates: start: 20220605, end: 20220605
  35. FLUZONE HIGH DOSE QUADRIVALENT [Concomitant]
     Dosage: DOSE NUMBER UNKNOWN, 0.7 ML SINGLE
     Dates: start: 20221018, end: 20221018
  36. MODERNA COVID-19 VACCINE [Concomitant]
     Active Substance: ELASOMERAN
     Indication: COVID-19 immunisation
     Dosage: DOSE NUMBER UNKNOWN, SINGLE
     Route: 030
  37. ACETAMINOPHEN [Concomitant]
     Active Substance: ACETAMINOPHEN
     Indication: Premedication
     Dosage: 650 MG
     Route: 048
  38. ACETAMINOPHEN [Concomitant]
     Active Substance: ACETAMINOPHEN
     Dosage: 650 MG
     Dates: start: 20200722
  39. ACETAMINOPHEN [Concomitant]
     Active Substance: ACETAMINOPHEN
     Dosage: 650 MG
     Route: 048
     Dates: start: 20200916
  40. ACETAMINOPHEN [Concomitant]
     Active Substance: ACETAMINOPHEN
     Dosage: 650 MG
     Route: 048
     Dates: start: 20201116
  41. HYDROCORTISONE [Concomitant]
     Active Substance: HYDROCORTISONE\HYDROCORTISONE ACETATE
     Indication: Premedication
     Dosage: 100 MG
     Route: 042
  42. HYDROCORTISONE [Concomitant]
     Active Substance: HYDROCORTISONE\HYDROCORTISONE ACETATE
     Dosage: 100 MG
     Dates: start: 20200722
  43. HYDROCORTISONE [Concomitant]
     Active Substance: HYDROCORTISONE\HYDROCORTISONE ACETATE
     Dosage: 100 MG
     Route: 042
     Dates: start: 20200916
  44. HYDROCORTISONE [Concomitant]
     Active Substance: HYDROCORTISONE\HYDROCORTISONE ACETATE
     Dosage: 100 MG
     Route: 042
     Dates: start: 20201116
  45. PREDNISONE [Concomitant]
     Active Substance: PREDNISONE
     Dosage: (TAPER)
  46. PREDNISONE [Concomitant]
     Active Substance: PREDNISONE
     Dosage: (TAPER)
  47. PREDNISONE [Concomitant]
     Active Substance: PREDNISONE
     Dosage: (TAPER)
  48. PENTASA [Concomitant]
     Active Substance: MESALAMINE
     Dosage: 1G, 1X/DAY 60 SUPPOSITORIES FOR 60 DAYS (INSERT 1 DF AT BEDTIME)
     Route: 054
     Dates: start: 20190827
  49. FLUTICASONE FUROATE [Concomitant]
     Active Substance: FLUTICASONE FUROATE
     Dosage: 1 DF, 1X/DAY, 120 CONTAINER(S) FOR 30 DAYS (1 SPRAY IN EACH NOSTRIL ONCE DAILY AS DIRECTED)
     Route: 045
     Dates: start: 20210322
  50. KETODERM [KETOCONAZOLE] [Concomitant]
     Dosage: 2X/DAY, 30 G FOR 7 DAYS (APPLY TO AFFECTED AREA(S) TWICE A DAY AS NEEDED FOR 30 DAYS)
     Dates: start: 20200901
  51. CEPHALEXIN [Concomitant]
     Active Substance: CEPHALEXIN
     Dosage: 500 MG, 4X/DAY FOR 10 DAYS (1 TABLET 4 TIMES DAILY FOR 10 DAYS UNTIL MEDICATION IS GONE)
     Dates: start: 20201002
  52. VERMOX [Concomitant]
     Active Substance: MEBENDAZOLE
     Dosage: 100 MG, 2X/DAY (1 DF TWICE A DAY FOR 3 DAYS)
     Route: 048
     Dates: start: 20210625
  53. ZOPICLONE [Concomitant]
     Active Substance: ZOPICLONE
     Dosage: 7.5 MG, 1X/DAY 90 DF FOR 90 DAYS (1 DF AT BEDTIME)
     Dates: start: 20210506
  54. ACETAMINOPHEN\TRAMADOL [Concomitant]
     Active Substance: ACETAMINOPHEN\TRAMADOL
     Indication: Pain
     Dosage: 1 DF, AS NEEDED (1 DF EVERY 4 HRS AS NEEDED, 30 TABLETS FOR 5 DAYS)
     Dates: start: 20210511
  55. AMOXICILLIN [Concomitant]
     Active Substance: AMOXICILLIN
     Dosage: 250 MG, 4X/DAY, 20 CAPSULES FOR 5 DAYS (1 DF EVERY 6 HRS UNTIL MEDICATION IS GONE)
     Dates: start: 20210520
  56. COLYTE [MACROGOL 3350;POTASSIUM CHLORIDE;SODIUM BICARBONATE;SODIUM CHL [Concomitant]
     Dosage: UNK (QTY: 280. TAKE AS DIRECTED)
     Dates: start: 20211020
  57. FERROUS GLUCONATE [Concomitant]
     Active Substance: FERROUS GLUCONATE
     Dosage: 600 MG, 1X/DAY (TAKE 2 TABLETS ONCE DAILY)
     Route: 048
     Dates: start: 20211119
  58. FERROUS GLUCONATE [Concomitant]
     Active Substance: FERROUS GLUCONATE
     Dosage: 600 MG, 1X/DAY, (35 MG) TAB (TAKE 2 TABLETS ONCE DAILY)
     Route: 048
     Dates: start: 20220907
  59. POLYETHYLENE GLYCOL 3350\POTASSIUM CHLORIDE\SODIUM BICARBONATE\SODIUM [Concomitant]
     Active Substance: POLYETHYLENE GLYCOL 3350\POTASSIUM CHLORIDE\SODIUM BICARBONATE\SODIUM CHLORIDE\SODIUM SULFATE
     Dosage: QTY: 4000. AS DIRECTED
     Dates: start: 20211121
  60. DESIPRAMINE [DESIPRAMINE HYDROCHLORIDE] [Concomitant]
     Dosage: 25 MG, 1X/DAY (1 TABLET ONCE DAILY FOR 2 WEEKS)
     Route: 048
     Dates: start: 20230118
  61. DESIPRAMINE [DESIPRAMINE HYDROCHLORIDE] [Concomitant]
     Dosage: 50 MG, 1X/DAY, (THEN 2 TABLETS ONCE DAILY FOR 2 WEEKS AS DIRECTED)
     Route: 048
  62. MOMETASONE [Concomitant]
     Active Substance: MOMETASONE
     Dosage: 1 DF, 1X/DAY (1 SPRAY IN EACH NOSTRIL ONCE DAILY, 1 BOTTLE FOR 70 DAYS)
     Route: 045
     Dates: start: 20230531
  63. PANTOPRAZOLE MAGNESIUM [Concomitant]
     Active Substance: PANTOPRAZOLE MAGNESIUM
     Dosage: 40 MG, DAILY (1 TABLET DAILY)
     Route: 048
     Dates: start: 20230926
  64. PAXLOVID [Concomitant]
     Active Substance: NIRMATRELVIR\RITONAVIR
     Dosage: 1 DF, 2X/DAY, 30 TABLETS FOR 5 DAYS, 1 DOSE TWICE DAILY UNTIL FINISHED
     Dates: start: 20230324
  65. TAMSULOSIN [Concomitant]
     Active Substance: TAMSULOSIN
     Dosage: 0.4 MG, 1X/DAY (1DF AT BEDTIME, 90 TABLETS FOR 90 DAYS)
     Dates: start: 20230601
  66. VALACYCLOVIR MYLAN [Concomitant]
     Dosage: 1000 MG (2DF), 3X/DAY (UNTIL FINISHED, 42 TABLETS FOR 7 DAYS)
     Dates: start: 20230710
  67. VIAGRA [Concomitant]
     Active Substance: SILDENAFIL CITRATE
     Dosage: 4 DF, WEEKLY (4 DF, WEEKLY, 1 DF (100 MG) 4 TIMES WEEKLY
     Dates: start: 20220906
  68. VIAGRA [Concomitant]
     Active Substance: SILDENAFIL CITRATE
     Dosage: 100 MG, DAILY (4 TABLETS FOR 4 DAYS, 1 DF DAILY WHEN NEEDED)
     Dates: start: 20230403

REACTIONS (11)
  - Weight decreased [Unknown]
  - Condition aggravated [Recovering/Resolving]
  - Fistula [Unknown]
  - Anal fissure [Unknown]
  - Blood pressure fluctuation [Unknown]
  - Blood pressure increased [Unknown]
  - Heart rate decreased [Unknown]
  - Off label use [Unknown]
  - Off label use [Unknown]
  - Intentional product use issue [Unknown]
  - Inappropriate schedule of product administration [Unknown]

NARRATIVE: CASE EVENT DATE: 20200207
